FAERS Safety Report 9285457 (Version 3)
Quarter: 2013Q2

REPORT INFORMATION
  Report Type: Spontaneous
  Country: US (occurrence: US)
  Receive Date: 20130513
  Receipt Date: 20130531
  Transmission Date: 20140414
  Serious: No
  Sender: FDA-Public Use
  Company Number: US-PFIZER INC-2013143760

PATIENT
  Age: 63 Year
  Sex: Female

DRUGS (3)
  1. ELLENCE [Suspect]
     Indication: GASTRIC CANCER
     Dosage: 50 MG/M2, Q 3 WEEKS
     Route: 042
     Dates: start: 20130207, end: 20130403
  2. CISPLATIN [Concomitant]
     Dosage: 50 MG/M2, EVERY 3 WEEKS
     Route: 042
  3. XELODA [Concomitant]
     Dosage: 625 MG/M2, 2X/DAY
     Route: 048

REACTIONS (2)
  - Disease progression [Unknown]
  - Gastric cancer [Unknown]
